FAERS Safety Report 9093033 (Version 1)
Quarter: 2013Q1

REPORT INFORMATION
  Report Type: Report from Study
  Country: US (occurrence: US)
  Receive Date: 20130218
  Receipt Date: 20130218
  Transmission Date: 20140127
  Serious: No
  Sender: FDA-Public Use
  Company Number: US-ABBOTT-12P-163-0977311-00

PATIENT
  Sex: Male

DRUGS (1)
  1. SIMCOR 500/20 [Suspect]
     Indication: BLOOD CHOLESTEROL INCREASED
     Dosage: 500MG/20MG AT BEDTIME-2-3 YEARS
     Dates: start: 2010

REACTIONS (4)
  - Flushing [Not Recovered/Not Resolved]
  - Paraesthesia [Recovering/Resolving]
  - Erythema [Not Recovered/Not Resolved]
  - Pruritus [Not Recovered/Not Resolved]
